FAERS Safety Report 19707304 (Version 1)
Quarter: 2021Q3

REPORT INFORMATION
  Report Type: Spontaneous
  Country: NL (occurrence: NL)
  Receive Date: 20210817
  Receipt Date: 20210817
  Transmission Date: 20211014
  Serious: Yes (Other)
  Sender: FDA-Public Use
  Company Number: NL-TEVA-2021-NL-1941891

PATIENT
  Age: 50 Year
  Sex: Female
  Weight: 58 kg

DRUGS (2)
  1. ALPRAZOLAM TABLET MGA 1MG / BRAND NAME NOT SPECIFIED [Concomitant]
     Dosage: 1 MG, THERAPY START AND END DATE: ASKU
  2. ARIPIPRAZOL TABLET 10MG / BRAND NAME NOT SPECIFIED [Suspect]
     Active Substance: ARIPIPRAZOLE
     Indication: PSYCHOTIC DISORDER
     Dosage: 10 MILLIGRAM DAILY; THERAPY END DATE: ASKU
     Route: 065
     Dates: start: 202101

REACTIONS (3)
  - Sleep disorder [Not Recovered/Not Resolved]
  - Tremor [Not Recovered/Not Resolved]
  - Salivary hypersecretion [Not Recovered/Not Resolved]

NARRATIVE: CASE EVENT DATE: 20210118
